FAERS Safety Report 9518326 (Version 2)
Quarter: 2013Q4

REPORT INFORMATION
  Report Type: Spontaneous
  Country: DK (occurrence: None)
  Receive Date: 20130910
  Receipt Date: 20131002
  Transmission Date: 20140711
  Serious: Yes (Other)
  Sender: FDA-Public Use
  Company Number: FK201303941

PATIENT
  Age: 57 Year
  Sex: Female

DRUGS (8)
  1. OXALIPLATIN [Suspect]
     Indication: HER-2 POSITIVE BREAST CANCER
  2. HERCEPTIN [Suspect]
     Indication: HER-2 POSITIVE BREAST CANCER
     Dates: start: 20061129, end: 20080326
  3. XELODA [Suspect]
     Indication: HER-2 POSITIVE BREAST CANCER
  4. ARIMIDEX [Suspect]
     Indication: PRODUCT USED FOR UNKNOWN INDICATION
     Dosage: UNKNOWN
  5. ZOLADEX [Suspect]
     Indication: PRODUCT USED FOR UNKNOWN INDICATION
     Dosage: UNKNOWN
  6. FASLODEX [Suspect]
     Indication: PRODUCT USED FOR UNKNOWN INDICATION
     Dosage: INTRAVENOUS (NOT OTHERWISE SPECIFIED)
     Route: 042
  7. VINORELBINE [Suspect]
     Indication: PRODUCT USED FOR UNKNOWN INDICATION
     Dosage: UNKNOWN
     Dates: start: 20121026
  8. TAXOL (PACLITAXEL) (PACLITAXEL) [Concomitant]

REACTIONS (8)
  - Metastases to liver [None]
  - Ejection fraction decreased [None]
  - Peripheral motor neuropathy [None]
  - Peripheral sensory neuropathy [None]
  - Neuralgia [None]
  - Hypertension [None]
  - Dyspnoea [None]
  - Ejection fraction decreased [None]
